FAERS Safety Report 13329090 (Version 1)
Quarter: 2017Q1

REPORT INFORMATION
  Report Type: Report from Study
  Country: BR (occurrence: BR)
  Receive Date: 20170313
  Receipt Date: 20170313
  Transmission Date: 20170428
  Serious: Yes (Death, Other)
  Sender: FDA-Public Use
  Company Number: PHHY2015BR109144

PATIENT
  Age: 65 Year
  Sex: Female
  Weight: 62 kg

DRUGS (6)
  1. CITONEURIN [Concomitant]
     Active Substance: CYANOCOBALAMIN\PYRIDOXINE HYDROCHLORIDE\THIAMINE
     Indication: PAIN IN EXTREMITY
     Dosage: 1 DF, QD
     Route: 030
     Dates: start: 2004
  2. EXJADE [Suspect]
     Active Substance: DEFERASIROX
     Dosage: 1500 MG (25 MG/KG), QD
     Route: 048
  3. EXJADE [Suspect]
     Active Substance: DEFERASIROX
     Indication: REFRACTORY CYTOPENIA WITH UNILINEAGE DYSPLASIA
     Dosage: 3000 MG, (3 TABLETS OF 500 MG AND 6 OF 250 MG)
     Route: 048
     Dates: start: 201209
  4. EXJADE [Suspect]
     Active Substance: DEFERASIROX
     Dosage: 15 MG/KG, QD (2 DF OF 500 MG)
     Route: 048
  5. EXJADE [Suspect]
     Active Substance: DEFERASIROX
     Dosage: 1500 MG, QD (3 TABLETS OF 500 MG
     Route: 048
  6. EXJADE [Suspect]
     Active Substance: DEFERASIROX
     Indication: MYELODYSPLASTIC SYNDROME
     Dosage: 3000 MG, (50 MG/KG, 3 TABLETS OF 500 MG AND 6 OF 250 MG) FASTING
     Route: 048

REACTIONS (28)
  - Memory impairment [Unknown]
  - Gait disturbance [Unknown]
  - Fear [Unknown]
  - Poor quality sleep [Unknown]
  - Psychological trauma [Unknown]
  - Abasia [Unknown]
  - Bone marrow failure [Unknown]
  - Fall [Unknown]
  - Headache [Unknown]
  - Asthenia [Unknown]
  - Nasopharyngitis [Unknown]
  - Feeding disorder [Unknown]
  - Weight decreased [Unknown]
  - Decreased immune responsiveness [Unknown]
  - Foot fracture [Unknown]
  - Arthralgia [Unknown]
  - Pyrexia [Unknown]
  - Incorrect dose administered [Unknown]
  - Osteoarthritis [Unknown]
  - Influenza [Not Recovered/Not Resolved]
  - Pain in extremity [Recovering/Resolving]
  - Disorientation [Unknown]
  - Somnolence [Unknown]
  - Fatigue [Recovering/Resolving]
  - Death [Fatal]
  - Fracture pain [Not Recovered/Not Resolved]
  - Malaise [Unknown]
  - Ligament sprain [Unknown]

NARRATIVE: CASE EVENT DATE: 20170220
